FAERS Safety Report 8543217-7 (Version None)
Quarter: 2012Q3

REPORT INFORMATION
  Report Type: 
  Country: None (occurrence: None)
  Receive Date: 20120716
  Receipt Date: 20120628
  Transmission Date: 20120928
  Serious: Yes (Other)
  Sender: FDA-Public Use
  Company Number: TPA2012A04310

PATIENT

DRUGS (1)
  1. PIOGLITAZONE HYDROCHLORIDE [Suspect]

REACTIONS (1)
  - OSTEONECROSIS [None]
